FAERS Safety Report 8103913-2 (Version None)
Quarter: 2012Q1

REPORT INFORMATION
  Report Type: 
  Country: None (occurrence: None)
  Receive Date: 20120201
  Receipt Date: 20120123
  Transmission Date: 20120608
  Serious: Yes (Hospitalization, Other)
  Sender: FDA-Public Use
  Company Number: PHHY2012CY006239

PATIENT
  Age: 75 Year
  Sex: Female

DRUGS (4)
  1. RIVASTIGMINE [Suspect]
     Indication: DEMENTIA ALZHEIMER'S TYPE
     Dosage: 9.5 MG/24H
     Route: 062
  2. AMLODIPINE [Concomitant]
     Indication: HYPERTENSION
     Dosage: 10 MG, DAILY
  3. METOPROLOL TARTRATE [Concomitant]
     Indication: HYPERTENSION
     Dosage: 25 MG, PER DAY
  4. LISINOPRIL [Concomitant]
     Indication: HYPERTENSION
     Dosage: 20 MG, DAILY

REACTIONS (9)
  - EXCORIATION [None]
  - PRURITUS GENERALISED [None]
  - APPLICATION SITE ERYTHEMA [None]
  - APPLICATION SITE REACTION [None]
  - RASH PAPULAR [None]
  - SKIN PLAQUE [None]
  - BLOOD IMMUNOGLOBULIN E INCREASED [None]
  - LEUKOCYTOCLASTIC VASCULITIS [None]
  - SKIN OEDEMA [None]
